FAERS Safety Report 11867491 (Version 2)
Quarter: 2018Q2

REPORT INFORMATION
  Report Type: Spontaneous
  Country: IT (occurrence: IT)
  Receive Date: 20151224
  Receipt Date: 20180413
  Transmission Date: 20180711
  Serious: Yes (Death, Hospitalization, Other)
  Sender: FDA-Public Use
  Company Number: IT-GLAXOSMITHKLINE-IT2015GSK180427

PATIENT
  Age: 38 Year
  Sex: Female
  Weight: 65 kg

DRUGS (5)
  1. PAROXETINE. [Concomitant]
     Active Substance: PAROXETINE
     Indication: DEPRESSION
     Dosage: UNK
  2. PAROXETINE. [Concomitant]
     Active Substance: PAROXETINE
     Indication: DECREASED APPETITE
  3. ALPRAZOLAM. [Concomitant]
     Active Substance: ALPRAZOLAM
     Indication: DECREASED APPETITE
     Dosage: UNK
  4. LAMOTRIGINE. [Suspect]
     Active Substance: LAMOTRIGINE
     Indication: PRODUCT USED FOR UNKNOWN INDICATION
     Dosage: 100 MG, QD
  5. ALPRAZOLAM. [Concomitant]
     Active Substance: ALPRAZOLAM
     Indication: DEPRESSION

REACTIONS (15)
  - Blood urea increased [Unknown]
  - Acute kidney injury [Unknown]
  - Acute hepatic failure [Unknown]
  - White blood cell count decreased [Unknown]
  - Coagulation test abnormal [Unknown]
  - Insomnia [Unknown]
  - Stupor [Unknown]
  - Coma [Unknown]
  - Neurological decompensation [Unknown]
  - Acute respiratory failure [Unknown]
  - Hepatic function abnormal [Unknown]
  - Drug hypersensitivity [Fatal]
  - Blood creatinine increased [Unknown]
  - Rash [Unknown]
  - Somnolence [Unknown]
